FAERS Safety Report 12824500 (Version 1)
Quarter: 2016Q4

REPORT INFORMATION
  Report Type: Spontaneous
  Country: GB (occurrence: GB)
  Receive Date: 20161007
  Receipt Date: 20161007
  Transmission Date: 20170207
  Serious: Yes (Other)
  Sender: FDA-Public Use
  Company Number: GB-TEVA-699446ACC

PATIENT
  Age: 24 Year
  Sex: Female
  Weight: 86.63 kg

DRUGS (1)
  1. ERYTHROMYCIN. [Suspect]
     Active Substance: ERYTHROMYCIN
     Indication: EAR INFECTION
     Dosage: 8 DOSAGE FORMS DAILY;
     Route: 048
     Dates: start: 20160916, end: 20160919

REACTIONS (1)
  - Chest pain [Recovered/Resolved]

NARRATIVE: CASE EVENT DATE: 20160919
